FAERS Safety Report 8910675 (Version 2)
Quarter: 2013Q1

REPORT INFORMATION
  Report Type: Spontaneous
  Country: SA (occurrence: None)
  Receive Date: 20121113
  Receipt Date: 20121120
  Transmission Date: 20140127
  Serious: Yes (Disabling, Other)
  Sender: FDA-Public Use
  Company Number: 2012AP003694

PATIENT
  Age: 72 Year
  Sex: Female

DRUGS (2)
  1. ALENDRONIC ACID (ALENDRONIC ACID) [Suspect]
     Indication: OSTEOPOROSIS
  2. ETIDRONIC ACID [Suspect]

REACTIONS (4)
  - Femur fracture [None]
  - Stress fracture [None]
  - Atypical femur fracture [None]
  - Groin pain [None]
